FAERS Safety Report 10594745 (Version 1)
Quarter: 2014Q4

REPORT INFORMATION
  Report Type: Spontaneous
  Country: DE (occurrence: DE)
  Receive Date: 20141120
  Receipt Date: 20141120
  Transmission Date: 20150529
  Serious: Yes (Other)
  Sender: FDA-Public Use
  Company Number: DE-RANBAXY-2014R1-87887

PATIENT
  Age: 34 Year
  Sex: Female
  Weight: 63 kg

DRUGS (11)
  1. DORMICUM [Concomitant]
     Active Substance: MIDAZOLAM\MIDAZOLAM HYDROCHLORIDE
     Indication: MIGRAINE
     Dosage: UNK
     Route: 042
     Dates: start: 20140510, end: 20140514
  2. ASS 100 [Concomitant]
     Active Substance: ASPIRIN
     Indication: MIGRAINE
     Dosage: 100 MG, QD
     Route: 048
     Dates: start: 20140525, end: 20140525
  3. OMEPRAZOL [Concomitant]
     Active Substance: OMEPRAZOLE
     Indication: GASTRITIS PROPHYLAXIS
     Dosage: 20 MG, QD
     Route: 048
     Dates: start: 20140506, end: 20140818
  4. MAXALT [Concomitant]
     Active Substance: RIZATRIPTAN BENZOATE
     Indication: MIGRAINE
     Dosage: UNK
     Route: 048
     Dates: start: 20140510, end: 20140703
  5. PERFALGAN [Concomitant]
     Active Substance: ACETAMINOPHEN
     Indication: MIGRAINE
     Dosage: UNK
     Route: 042
     Dates: start: 20140510, end: 20140514
  6. RELPAX [Concomitant]
     Active Substance: ELETRIPTAN HYDROBROMIDE
     Indication: MIGRAINE
     Dosage: 40 MG, QD
     Route: 048
     Dates: start: 20140528, end: 20140612
  7. SUMATRIPTAN. [Concomitant]
     Active Substance: SUMATRIPTAN
     Indication: MIGRAINE
     Dosage: 100 MG, QD
     Route: 048
     Dates: start: 20140701, end: 20140730
  8. ALLEGRO 2,5 [Concomitant]
     Indication: MIGRAINE
     Dosage: 25 MG, QD
     Route: 048
     Dates: start: 20140506, end: 20140527
  9. FOLIO FORTE [Concomitant]
     Active Substance: FOLIC ACID\VITAMINS
     Indication: PROPHYLAXIS OF NEURAL TUBE DEFECT
     Dosage: 0.8 MG, QD
     Route: 048
  10. TOPIRAMATE. [Suspect]
     Active Substance: TOPIRAMATE
     Indication: MIGRAINE PROPHYLAXIS
     Dosage: UNK
     Route: 048
     Dates: start: 20140515, end: 20140905
  11. NOVALGIN [Concomitant]
     Active Substance: METAMIZOLE SODIUM
     Indication: MIGRAINE
     Dosage: UNK
     Route: 042
     Dates: start: 20140510, end: 20140514

REACTIONS (1)
  - Abortion missed [Recovered/Resolved]
